FAERS Safety Report 15907165 (Version 1)
Quarter: 2019Q1

REPORT INFORMATION
  Report Type: Spontaneous
  Country: US (occurrence: US)
  Receive Date: 20190204
  Receipt Date: 20190204
  Transmission Date: 20190417
  Serious: Yes (Disabling)
  Sender: FDA-Public Use
  Company Number: None

PATIENT
  Age: 35 Year
  Sex: Male

DRUGS (1)
  1. FINASTERIDE. [Suspect]
     Active Substance: FINASTERIDE

REACTIONS (4)
  - Depression [None]
  - Suicidal ideation [None]
  - Erectile dysfunction [None]
  - Dry eye [None]

NARRATIVE: CASE EVENT DATE: 20150205
